FAERS Safety Report 4415108-4 (Version None)
Quarter: 2004Q3

REPORT INFORMATION
  Report Type: 
  Country: None (occurrence: None)
  Receive Date: 20040729
  Receipt Date: 20040713
  Transmission Date: 20050211
  Serious: Yes (Hospitalization)
  Sender: FDA-Public Use
  Company Number: 8006824

PATIENT
  Age: 7 Year
  Sex: Female

DRUGS (7)
  1. KEPPRA [Suspect]
     Indication: CONVULSION
     Dosage: 350 MG 2/D PO
     Route: 048
     Dates: start: 20040501, end: 20040713
  2. VANCOMYCIN [Concomitant]
  3. CEFATAZIDIME [Concomitant]
  4. FLUCONAZOLE [Concomitant]
  5. ACYCLOVIR [Concomitant]
  6. FILGRASTIM [Concomitant]
  7. MIROLAX [Concomitant]

REACTIONS (1)
  - BONE MARROW DEPRESSION [None]
